FAERS Safety Report 9476274 (Version 1)
Quarter: 2013Q3

REPORT INFORMATION
  Report Type: Spontaneous
  Country: IT (occurrence: IT)
  Receive Date: 20130826
  Receipt Date: 20130826
  Transmission Date: 20140515
  Serious: Yes (Hospitalization, Other)
  Sender: FDA-Public Use
  Company Number: IT-PFIZER INC-2013244101

PATIENT
  Age: 58 Year
  Sex: Male

DRUGS (8)
  1. ATENOLOL [Suspect]
     Indication: HYPERTENSION
     Dosage: 100 MG, 1X/DAY
     Route: 048
     Dates: start: 20070101, end: 20130620
  2. KCL RETARD [Suspect]
     Indication: HYPERTENSION
     Dosage: 600 MG, 1X/DAY
     Route: 048
     Dates: start: 20070101, end: 20130620
  3. DRONEDARONE [Suspect]
     Indication: ATRIAL FIBRILLATION
     Dosage: 400 MG, 1X/DAY
     Route: 048
     Dates: start: 20070101, end: 20130620
  4. LASIX [Concomitant]
     Dosage: 25 MG UNK
     Route: 065
  5. COUMADIN [Concomitant]
     Dosage: 5 MG UNK
  6. CRESTOR [Concomitant]
     Indication: DYSLIPIDAEMIA
     Dosage: 10 MG UNK
     Route: 065
  7. PANTORC [Concomitant]
     Dosage: 20 MG UNK
     Route: 065
  8. FELODIPINE [Concomitant]
     Dosage: UNK
     Route: 065

REACTIONS (3)
  - Nodal arrhythmia [Recovered/Resolved]
  - Hyperkalaemia [Recovered/Resolved]
  - Bradycardia [Unknown]
